FAERS Safety Report 13267483 (Version 2)
Quarter: 2017Q1

REPORT INFORMATION
  Report Type: Spontaneous
  Country: US (occurrence: US)
  Receive Date: 20170224
  Receipt Date: 20170329
  Transmission Date: 20170428
  Serious: No
  Sender: FDA-Public Use
  Company Number: PHEH2017US005149

PATIENT
  Age: 59 Year
  Sex: Female
  Weight: 78.5 kg

DRUGS (4)
  1. TYKERB [Suspect]
     Active Substance: LAPATINIB DITOSYLATE
     Indication: BRAIN NEOPLASM MALIGNANT
  2. FRAGMIN [Concomitant]
     Active Substance: DALTEPARIN SODIUM
     Indication: PRODUCT USED FOR UNKNOWN INDICATION
     Route: 065
  3. TYKERB [Suspect]
     Active Substance: LAPATINIB DITOSYLATE
     Indication: BREAST CANCER METASTATIC
     Dosage: 1250 MG, QD
     Route: 048
     Dates: start: 201701
  4. CAPECITABINE. [Concomitant]
     Active Substance: CAPECITABINE
     Indication: PRODUCT USED FOR UNKNOWN INDICATION
     Dosage: 1500 MG, BID (7 DAYS ON , 7 DAYS OFF)
     Route: 065

REACTIONS (10)
  - Judgement impaired [Unknown]
  - Asthenia [Unknown]
  - Pain [Unknown]
  - Fatigue [Unknown]
  - Diarrhoea [Unknown]
  - Somnolence [Unknown]
  - Amnesia [Unknown]
  - Atrophy [Unknown]
  - Constipation [Unknown]
  - Gait disturbance [Unknown]

NARRATIVE: CASE EVENT DATE: 20170113
